FAERS Safety Report 6115379-2 (Version None)
Quarter: 2009Q1

REPORT INFORMATION
  Report Type: 
  Country: None (occurrence: None)
  Receive Date: 20090313
  Receipt Date: 20090304
  Transmission Date: 20090719
  Serious: Yes (Other)
  Sender: FDA-Public Use
  Company Number: PHEH2007US05483

PATIENT
  Sex: Female
  Weight: 92.517 kg

DRUGS (13)
  1. AREDIA [Suspect]
     Dosage: 90MG EVERY MONTH
     Route: 042
  2. ZOMETA [Suspect]
     Dosage: MONTHLY
  3. BEXTRA [Concomitant]
  4. COUMADIN [Concomitant]
     Dosage: 2.5MG DAILY
  5. LORTAB [Concomitant]
     Dosage: 7.5MG AS NEEDED
  6. AMBIEN [Concomitant]
     Dosage: 10MG AT BEDTIME
  7. PRILOSEC [Concomitant]
     Dosage: 20MG AS NEEDED
  8. MIRALAX [Concomitant]
     Dosage: AS NEEDED
  9. POTASSIUM CHLORIDE [Concomitant]
     Dosage: 20 MEQ DAILY
  10. MS CONTIN [Concomitant]
     Dosage: 30MG TWICE DAILY
  11. CHROMAGEN [Concomitant]
     Dosage: DAILY
  12. PROCRIT                            /00909301/ [Concomitant]
     Dosage: 40, 000 UNITS WEEKLY
  13. SENOKOT                                 /UNK/ [Concomitant]
     Dosage: AS NEEDED

REACTIONS (8)
  - ANXIETY [None]
  - BONE PAIN [None]
  - INJURY [None]
  - OESOPHAGEAL CANDIDIASIS [None]
  - ORAL HERPES [None]
  - OSTEONECROSIS [None]
  - PAIN [None]
  - RENAL FAILURE [None]
